FAERS Safety Report 5001314-7 (Version None)
Quarter: 2006Q2

REPORT INFORMATION
  Report Type: 
  Country: None (occurrence: None)
  Receive Date: 20060512
  Receipt Date: 20050126
  Transmission Date: 20061013
  Serious: Yes (Hospitalization, Other)
  Sender: FDA-Public Use
  Company Number: US-MERCK-0501USA04306

PATIENT
  Age: 72 Year
  Sex: Male

DRUGS (14)
  1. VIOXX [Suspect]
     Route: 048
     Dates: end: 20040908
  2. VIOXX [Suspect]
     Route: 048
     Dates: start: 20040908
  3. FERROUS SULFATE [Concomitant]
     Route: 065
  4. PROTONIX [Concomitant]
     Route: 065
  5. FLOMAX (MORNIFLUMATE) [Concomitant]
     Route: 065
  6. LISINOPRIL-BC [Concomitant]
     Route: 065
  7. LASIX [Concomitant]
     Route: 065
  8. COLACE [Concomitant]
     Route: 065
  9. ALTACE [Concomitant]
     Route: 065
  10. COREG [Concomitant]
     Route: 048
  11. COREG [Concomitant]
     Route: 065
     Dates: start: 20040908
  12. VITAMINS (UNSPECIFIED) [Concomitant]
     Route: 065
  13. ALDACTONE [Concomitant]
     Route: 065
  14. CLONAZEPAM [Concomitant]
     Route: 065

REACTIONS (8)
  - ANXIETY [None]
  - CARDIAC FAILURE CONGESTIVE [None]
  - HYPOKALAEMIA [None]
  - MYOCARDIAL INFARCTION [None]
  - OSTEOARTHRITIS [None]
  - PALPITATIONS [None]
  - RESTLESS LEGS SYNDROME [None]
  - RESTLESSNESS [None]
